FAERS Safety Report 19925603 (Version 1)
Quarter: 2021Q4

REPORT INFORMATION
  Report Type: Spontaneous
  Country: CN (occurrence: CN)
  Receive Date: 20211006
  Receipt Date: 20211006
  Transmission Date: 20220303
  Serious: Yes (Life-Threatening, Other)
  Sender: FDA-Public Use
  Company Number: CN-PFIZER INC-202101265897

PATIENT
  Age: 55 Year
  Sex: Female
  Weight: 54.2 kg

DRUGS (2)
  1. PIPERACILLIN SODIUM\TAZOBACTAM SODIUM [Suspect]
     Active Substance: PIPERACILLIN SODIUM\TAZOBACTAM SODIUM
     Indication: Pneumonia
     Dosage: 4.5 G, 2X/DAY
     Route: 041
     Dates: start: 20210920, end: 20210921
  2. SODIUM CHLORIDE [Concomitant]
     Active Substance: SODIUM CHLORIDE
     Indication: Vehicle solution use
     Dosage: 50.0 ML, 2X/DAY
     Route: 041
     Dates: start: 20210920, end: 20210921

REACTIONS (14)
  - Hypersensitivity [Unknown]
  - Hypertension [Unknown]
  - Left ventricular failure [Unknown]
  - Respiratory rate increased [Unknown]
  - Chest discomfort [Unknown]
  - Tachypnoea [Unknown]
  - Stridor [Unknown]
  - Body temperature increased [Unknown]
  - Heart rate increased [Unknown]
  - Oxygen saturation decreased [Unknown]
  - Breath sounds abnormal [Unknown]
  - Rales [Unknown]
  - Dyspnoea [Unknown]
  - Mental fatigue [Unknown]

NARRATIVE: CASE EVENT DATE: 20210921
